FAERS Safety Report 11135513 (Version 1)
Quarter: 2015Q2

REPORT INFORMATION
  Report Type: Spontaneous
  Country: US (occurrence: None)
  Receive Date: 20150522
  Receipt Date: 20150522
  Transmission Date: 20150821
  Serious: Yes (Disabling, Other)
  Sender: FDA-Public Use
  Company Number: None

PATIENT
  Age: 47 Year
  Sex: Female

DRUGS (10)
  1. CALCIUM ??? [Concomitant]
  2. LEVAQUIN [Suspect]
     Active Substance: LEVOFLOXACIN
     Indication: LUNG DISORDER
     Dosage: ONE, ONCE DAILY, TAKEN BY MOUTH
     Route: 048
     Dates: start: 20150305, end: 20150317
  3. DOXEPIN 2- [Concomitant]
  4. ZANTAC [Concomitant]
     Active Substance: RANITIDINE HYDROCHLORIDE
  5. TAMAZEPAM??? [Concomitant]
  6. MULTI VITAMIN [Concomitant]
     Active Substance: VITAMINS
  7. FISH OIL [Concomitant]
     Active Substance: FISH OIL
  8. OTC [Concomitant]
     Active Substance: UNSPECIFIED INGREDIENT
  9. LEVAQUIN [Suspect]
     Active Substance: LEVOFLOXACIN
     Indication: COUGH
     Dosage: ONE, ONCE DAILY, TAKEN BY MOUTH
     Route: 048
     Dates: start: 20150305, end: 20150317
  10. VITAMIN D [Concomitant]
     Active Substance: CHOLECALCIFEROL

REACTIONS (7)
  - Fall [None]
  - Toxicity to various agents [None]
  - Muscular weakness [None]
  - Neuralgia [None]
  - Impaired work ability [None]
  - Abscess oral [None]
  - Pain in extremity [None]

NARRATIVE: CASE EVENT DATE: 20150317
